FAERS Safety Report 11189780 (Version 1)
Quarter: 2015Q2

REPORT INFORMATION
  Report Type: Spontaneous
  Country: US (occurrence: None)
  Receive Date: 20150612
  Receipt Date: 20150612
  Transmission Date: 20150821
  Serious: Yes (Other)
  Sender: FDA-Public Use
  Company Number: None

PATIENT
  Age: 68 Month
  Sex: Female
  Weight: 79.38 kg

DRUGS (7)
  1. NOVASC [Concomitant]
  2. POTASSIUM WATER PILL [Concomitant]
  3. RECLAST [Suspect]
     Active Substance: ZOLEDRONIC ACID
     Indication: BONE DISORDER
  4. SYNAROID [Concomitant]
  5. XANAX [Concomitant]
     Active Substance: ALPRAZOLAM
  6. GNC ACTIVE WOMEN VIT [Concomitant]
  7. MEDFORMIN [Concomitant]

REACTIONS (14)
  - Eye disorder [None]
  - Skin discolouration [None]
  - Lip disorder [None]
  - Haemorrhage [None]
  - Blood pressure inadequately controlled [None]
  - Skin exfoliation [None]
  - Oedema [None]
  - Erythema [None]
  - Renal failure [None]
  - Coronary arterial stent insertion [None]
  - Cardiac disorder [None]
  - Unevaluable event [None]
  - Hepatic mass [None]
  - Electroencephalogram abnormal [None]
